FAERS Safety Report 24114183 (Version 3)
Quarter: 2024Q3

REPORT INFORMATION
  Report Type: Spontaneous
  Country: AU (occurrence: AU)
  Receive Date: 20240720
  Receipt Date: 20240805
  Transmission Date: 20241017
  Serious: Yes (Disabling)
  Sender: MACLEODS
  Company Number: AU-MACLEODS PHARMA-MAC2024048289

PATIENT

DRUGS (1)
  1. SILDENAFIL [Suspect]
     Active Substance: SILDENAFIL
     Indication: Product used for unknown indication
     Dosage: PARTIAL DOSE OF SILDENAFIL (APPROXIMATELY 10 MG)
     Route: 065

REACTIONS (4)
  - Diplacusis [Recovered/Resolved]
  - Deafness neurosensory [Recovered/Resolved]
  - Deafness unilateral [Recovered/Resolved]
  - Tinnitus [Recovered/Resolved]
